FAERS Safety Report 24013967 (Version 1)
Quarter: 2024Q2

REPORT INFORMATION
  Report Type: Spontaneous
  Country: US (occurrence: None)
  Receive Date: 20240626
  Receipt Date: 20240626
  Transmission Date: 20240715
  Serious: No
  Sender: FDA-Public Use
  Company Number: 2024A132493

PATIENT
  Sex: Female

DRUGS (1)
  1. BUDESONIDE\FORMOTEROL [Suspect]
     Active Substance: BUDESONIDE\FORMOTEROL
     Indication: Chronic obstructive pulmonary disease
     Dosage: 160 UG UNKNOWN UNKNOWN
     Route: 055
     Dates: start: 202404

REACTIONS (3)
  - Memory impairment [Unknown]
  - Device use issue [Unknown]
  - Device malfunction [Unknown]
